FAERS Safety Report 7548080-9 (Version None)
Quarter: 2011Q2

REPORT INFORMATION
  Report Type: 
  Country: None (occurrence: None)
  Receive Date: 20110615
  Receipt Date: 20081115
  Transmission Date: 20111010
  Serious: Yes (Other)
  Sender: FDA-Public Use
  Company Number: US-BAYER-200838592NA

PATIENT
  Age: 66 Year
  Sex: Male
  Weight: 93 kg

DRUGS (15)
  1. LEVOPHED [Concomitant]
     Dosage: TITRATED
     Route: 042
     Dates: start: 20061106
  2. ACETYLSALICYLIC ACID SRT [Concomitant]
  3. HEPARIN [Concomitant]
     Dosage: 10,000 UNITS
     Route: 042
     Dates: start: 20061106, end: 20061106
  4. PHENYLEPHRINE HCL [Concomitant]
     Dosage: TITRATED
     Route: 042
     Dates: start: 20061106
  5. DOPAMINE HCL [Concomitant]
     Dosage: TITRATED
     Route: 042
     Dates: start: 20061106
  6. CEFAZOLIN [Concomitant]
     Dosage: 2.25 GRAMS
     Route: 042
     Dates: start: 20061106
  7. AMIODARONE HCL [Concomitant]
     Route: 042
  8. PLATELETS [Concomitant]
     Dosage: 10 PACKS ONCE
     Route: 042
     Dates: start: 20061106
  9. SODIUM BICARBONATE [Concomitant]
     Dosage: 50 MILLIEQUIVILANTS
     Route: 042
     Dates: start: 20061106, end: 20061106
  10. CALCIUM CHLORIDE [Concomitant]
     Dosage: UNK
     Route: 042
     Dates: start: 20061106
  11. TRASYLOL [Suspect]
     Indication: MITRAL VALVE REPLACEMENT
     Dosage: 200 ML, ONCE, LOADING DOSE
     Route: 042
     Dates: start: 20061106, end: 20061106
  12. TRASYLOL [Suspect]
     Indication: CORONARY ARTERY BYPASS
     Dosage: 50 ML/HR INFUSION
     Route: 042
     Dates: start: 20061106, end: 20061106
  13. VANCOMYCIN [Concomitant]
  14. MANNITOL [Concomitant]
     Dosage: 12.5 MG
     Route: 042
     Dates: start: 20061106, end: 20061106
  15. RED BLOOD CELLS [Concomitant]
     Dosage: 1 U, ONCE
     Route: 042
     Dates: start: 20061106

REACTIONS (8)
  - INJURY [None]
  - PAIN [None]
  - ANXIETY [None]
  - UNEVALUABLE EVENT [None]
  - RENAL FAILURE [None]
  - ANHEDONIA [None]
  - FEAR [None]
  - DEPRESSION [None]
